FAERS Safety Report 8197037-6 (Version None)
Quarter: 2012Q1

REPORT INFORMATION
  Report Type: 
  Country: None (occurrence: None)
  Receive Date: 20120309
  Receipt Date: 20120228
  Transmission Date: 20120608
  Serious: Yes (Other)
  Sender: FDA-Public Use
  Company Number: DE-ELI_LILLY_AND_COMPANY-DE201111008822

PATIENT
  Sex: Female

DRUGS (3)
  1. ANALGESICS [Concomitant]
     Dosage: UNK UNK, TID
  2. FORTEO [Suspect]
     Indication: OSTEOPOROSIS
     Dosage: UNK, QD
     Route: 058
     Dates: start: 20110524
  3. CORTISONE ACETATE [Concomitant]

REACTIONS (5)
  - DYSPNOEA [None]
  - CARDIAC DISORDER [None]
  - PATHOLOGICAL FRACTURE [None]
  - PAIN [None]
  - RESPIRATORY DISORDER [None]
